FAERS Safety Report 7382720-2 (Version None)
Quarter: 2011Q1

REPORT INFORMATION
  Report Type: 
  Country: None (occurrence: None)
  Receive Date: 20110330
  Receipt Date: 20110321
  Transmission Date: 20110831
  Serious: No
  Sender: FDA-Public Use
  Company Number: US-BIOGENIDEC-2010BI010176

PATIENT
  Age: 47 Year
  Sex: Male

DRUGS (2)
  1. DRAMAMINE LIKE DRUG (NOS) [Concomitant]
     Indication: PREMEDICATION
  2. TYSABRI [Suspect]
     Indication: MULTIPLE SCLEROSIS
     Route: 042
     Dates: start: 20090417

REACTIONS (3)
  - DIZZINESS [None]
  - CHILLS [None]
  - ALOPECIA [None]
